FAERS Safety Report 16374606 (Version 4)
Quarter: 2020Q2

REPORT INFORMATION
  Report Type: Spontaneous
  Country: US (occurrence: US)
  Receive Date: 20190530
  Receipt Date: 20200616
  Transmission Date: 20200713
  Serious: No
  Sender: FDA-Public Use
  Company Number: US-TAKEDA-2019TUS031750

PATIENT
  Age: 63 Year
  Sex: Male

DRUGS (1)
  1. NINLARO [Suspect]
     Active Substance: IXAZOMIB CITRATE
     Indication: PLASMA CELL MYELOMA
     Dosage: 4 MILLIGRAM, 1/WEEK
     Route: 048
     Dates: start: 20181023

REACTIONS (7)
  - Upper-airway cough syndrome [Unknown]
  - Dry eye [Not Recovered/Not Resolved]
  - Product packaging quantity issue [Unknown]
  - Neuropathy peripheral [Not Recovered/Not Resolved]
  - Product dose omission [Unknown]
  - Off label use [Unknown]
  - Limb discomfort [Unknown]

NARRATIVE: CASE EVENT DATE: 20190126
